FAERS Safety Report 18215014 (Version 3)
Quarter: 2020Q4

REPORT INFORMATION
  Report Type: Spontaneous
  Country: US (occurrence: US)
  Receive Date: 20200831
  Receipt Date: 20201207
  Transmission Date: 20210113
  Serious: Yes (Other)
  Sender: FDA-Public Use
  Company Number: US-GILEAD-2020-0490787

PATIENT
  Age: 63 Year
  Sex: Female
  Weight: 72.56 kg

DRUGS (57)
  1. ESCITALOPRAM [Concomitant]
     Active Substance: ESCITALOPRAM OXALATE
     Indication: DEPRESSION
  2. LISINOPRIL. [Concomitant]
     Active Substance: LISINOPRIL
     Indication: HYPERTENSION
  3. TRAMADOL. [Concomitant]
     Active Substance: TRAMADOL
     Indication: PAIN
  4. CYCLOBENZAPRINE. [Concomitant]
     Active Substance: CYCLOBENZAPRINE
     Indication: MUSCLE RELAXANT THERAPY
  5. ADVAIR HFA [Concomitant]
     Active Substance: FLUTICASONE PROPIONATE\SALMETEROL XINAFOATE
     Indication: CHRONIC OBSTRUCTIVE PULMONARY DISEASE
  6. BENZONATATE. [Concomitant]
     Active Substance: BENZONATATE
     Indication: COUGH
  7. AMLODIPINE [Concomitant]
     Active Substance: AMLODIPINE BESYLATE
     Indication: HYPERTENSION
  8. ATRIPLA [Suspect]
     Active Substance: EFAVIRENZ\EMTRICITABINE\TENOFOVIR DISOPROXIL FUMARATE
     Indication: HIV INFECTION
     Dosage: UNK
     Route: 048
     Dates: start: 20090715, end: 20160630
  9. ATRIPLA [Suspect]
     Active Substance: EFAVIRENZ\EMTRICITABINE\TENOFOVIR DISOPROXIL FUMARATE
     Dosage: UNK
     Route: 048
     Dates: start: 2010, end: 2017
  10. RANITIDINE. [Concomitant]
     Active Substance: RANITIDINE
     Indication: HIV INFECTION
  11. METHYLPREDNISOLONE. [Concomitant]
     Active Substance: METHYLPREDNISOLONE
     Indication: HAND DERMATITIS
  12. TERBINAFINE. [Concomitant]
     Active Substance: TERBINAFINE
     Indication: FUNGAL INFECTION
  13. BUPROPION. [Concomitant]
     Active Substance: BUPROPION
     Indication: DEPRESSION
  14. LYRICA [Concomitant]
     Active Substance: PREGABALIN
     Indication: NEURALGIA
  15. VITAMIN D [ERGOCALCIFEROL] [Concomitant]
     Active Substance: ERGOCALCIFEROL
     Indication: OSTEOPENIA
  16. VIRAMUNE [Concomitant]
     Active Substance: NEVIRAPINE
     Indication: HIV INFECTION
  17. METOPROLOL [METOPROLOL FUMARATE] [Concomitant]
     Indication: HYPERTENSION
  18. DICLOFENAC SODIUM. [Concomitant]
     Active Substance: DICLOFENAC SODIUM
     Indication: INFLAMMATION
  19. CETRIZINE [Concomitant]
     Active Substance: CETIRIZINE HYDROCHLORIDE
     Indication: HYPERSENSITIVITY
  20. NICOTINE (BETA CYCLODEXTRIN) [Concomitant]
     Indication: EX-TOBACCO USER
  21. SULFAMETHIZOLE [Concomitant]
     Active Substance: SULFAMETHIZOLE
     Indication: ANTIBIOTIC PROPHYLAXIS
  22. VITAMIN D2 [Concomitant]
     Active Substance: ERGOCALCIFEROL
     Indication: CALCIUM DEFICIENCY
  23. PANTOPRAZOLE [Concomitant]
     Active Substance: PANTOPRAZOLE
     Indication: GASTROOESOPHAGEAL REFLUX DISEASE
  24. FLUCONAZOLE. [Concomitant]
     Active Substance: FLUCONAZOLE
     Indication: FUNGAL INFECTION
  25. BIKTARVY [Concomitant]
     Active Substance: BICTEGRAVIR SODIUM\EMTRICITABINE\TENOFOVIR ALAFENAMIDE FUMARATE
     Indication: HIV INFECTION
  26. GENVOYA [Concomitant]
     Active Substance: COBICISTAT\ELVITEGRAVIR\EMTRICITABINE\TENOFOVIR ALAFENAMIDE FUMARATE
     Indication: HIV INFECTION
  27. PREMARIN [Concomitant]
     Active Substance: ESTROGENS, CONJUGATED
     Indication: BLOOD OESTROGEN
  28. METRONIDAZOLE. [Concomitant]
     Active Substance: METRONIDAZOLE
     Indication: VAGINAL INFECTION
  29. ERYTHROMYCIN. [Concomitant]
     Active Substance: ERYTHROMYCIN
     Indication: EYE INFECTION
  30. VENTOLIN [Concomitant]
     Active Substance: ALBUTEROL SULFATE
     Indication: ASTHMA
  31. PROVENTIL [Concomitant]
     Active Substance: ALBUTEROL
     Indication: ASTHMA
  32. COMBIVIR [Concomitant]
     Active Substance: LAMIVUDINE\ZIDOVUDINE
     Indication: HIV INFECTION
  33. ROSUVASTATIN. [Concomitant]
     Active Substance: ROSUVASTATIN
     Indication: HYPERCHOLESTEROLAEMIA
  34. MONTELUKAST [Concomitant]
     Active Substance: MONTELUKAST SODIUM
     Indication: HYPERSENSITIVITY
  35. LORATADINE. [Concomitant]
     Active Substance: LORATADINE
     Indication: HYPERSENSITIVITY
  36. ESOMEPRAZOLE. [Concomitant]
     Active Substance: ESOMEPRAZOLE MAGNESIUM
     Indication: GASTROOESOPHAGEAL REFLUX DISEASE
  37. HYDROCHLOROTHIAZIDE. [Concomitant]
     Active Substance: HYDROCHLOROTHIAZIDE
     Indication: HYPERTENSION
  38. GENTAMICIN. [Concomitant]
     Active Substance: GENTAMICIN
     Indication: SKIN PAPILLOMA
  39. KETOCONAZOLE 200 [Concomitant]
     Indication: SKIN PAPILLOMA
  40. MUCINEX [Concomitant]
     Active Substance: GUAIFENESIN
     Indication: NASAL CONGESTION
  41. FLUTICASONE. [Concomitant]
     Active Substance: FLUTICASONE
     Indication: NASAL CONGESTION
  42. ALBUTEROL [SALBUTAMOL] [Concomitant]
     Active Substance: ALBUTEROL
     Indication: ASTHMA
  43. GABAPENTIN. [Concomitant]
     Active Substance: GABAPENTIN
     Indication: NEUROPATHY PERIPHERAL
  44. CEFDINIR. [Concomitant]
     Active Substance: CEFDINIR
     Indication: ANTIBIOTIC PROPHYLAXIS
  45. AZELASTIN [Concomitant]
     Indication: HYPERSENSITIVITY
  46. CHANTIX [Concomitant]
     Active Substance: VARENICLINE TARTRATE
     Indication: EX-TOBACCO USER
  47. VITAMIN D [ERGOCALCIFEROL] [Concomitant]
     Active Substance: ERGOCALCIFEROL
     Indication: OSTEOPOROSIS
     Dosage: UNK
     Dates: start: 20100511
  48. OLMESARTAN [Concomitant]
     Active Substance: OLMESARTAN
     Indication: HYPERTENSION
  49. HYDROCODONE [Concomitant]
     Active Substance: HYDROCODONE
     Indication: PAIN
  50. MELOXICAM. [Concomitant]
     Active Substance: MELOXICAM
     Indication: ARTHRITIS
  51. LEVOFLOXACIN. [Concomitant]
     Active Substance: LEVOFLOXACIN
     Indication: ANTIBIOTIC PROPHYLAXIS
  52. PRAVASTATIN. [Concomitant]
     Active Substance: PRAVASTATIN
     Indication: HYPERLIPIDAEMIA
  53. BISACODYL. [Concomitant]
     Active Substance: BISACODYL
     Indication: CONSTIPATION
  54. CITALOPRAM [Concomitant]
     Active Substance: CITALOPRAM HYDROBROMIDE
     Indication: DEPRESSION
  55. ALENDRONATE [Concomitant]
     Active Substance: ALENDRONATE SODIUM
     Indication: OSTEOPOROSIS PROPHYLAXIS
  56. AMITRIPTYLINE [Concomitant]
     Active Substance: AMITRIPTYLINE
     Indication: HYPERTENSION
  57. OXYCODONE [Concomitant]
     Active Substance: OXYCODONE
     Indication: PAIN

REACTIONS (12)
  - Osteoporosis [Not Recovered/Not Resolved]
  - Arthralgia [Not Recovered/Not Resolved]
  - Back pain [Not Recovered/Not Resolved]
  - Pain in extremity [Not Recovered/Not Resolved]
  - Bone density decreased [Not Recovered/Not Resolved]
  - Anhedonia [Unknown]
  - Osteopenia [Not Recovered/Not Resolved]
  - Emotional distress [Recovered/Resolved]
  - Foot fracture [Unknown]
  - Neck pain [Not Recovered/Not Resolved]
  - Pain [Recovered/Resolved]
  - Loss of personal independence in daily activities [Not Recovered/Not Resolved]

NARRATIVE: CASE EVENT DATE: 20141111
